FAERS Safety Report 13949185 (Version 1)
Quarter: 2017Q3

REPORT INFORMATION
  Report Type: Report from Study
  Country: KR (occurrence: KR)
  Receive Date: 20170908
  Receipt Date: 20170908
  Transmission Date: 20171128
  Serious: Yes (Hospitalization)
  Sender: FDA-Public Use
  Company Number: KR-DSJP-DSJ-2017-134726

PATIENT

DRUGS (15)
  1. ACERTIL                            /00790702/ [Concomitant]
     Indication: ATRIAL FIBRILLATION
     Dosage: 4 MG, QD
     Route: 048
     Dates: start: 20130424, end: 20170520
  2. ALBIS D [Concomitant]
     Indication: GASTROENTERITIS
     Dosage: 1 DF, BID
     Route: 048
     Dates: start: 20160321, end: 20170520
  3. ALBIS D [Concomitant]
     Indication: DYSPEPSIA
     Dosage: 1 DF, BID
     Route: 048
     Dates: start: 20170728
  4. DIGOSIN [Concomitant]
     Active Substance: DIGOXIN
     Indication: SYSTOLIC DYSFUNCTION
     Dosage: 0.125 MG, QD
     Route: 048
     Dates: start: 20170801, end: 20170806
  5. CHOLINE ALFOSCERATE [Concomitant]
     Active Substance: CHOLINE ALFOSCERATE
     Dosage: 1 DF, BID
     Route: 048
     Dates: start: 20170728
  6. EDOXABAN [Suspect]
     Active Substance: EDOXABAN TOSYLATE
     Indication: ATRIAL FIBRILLATION
     Dosage: 30MG/DAY
     Route: 048
     Dates: start: 20160919, end: 20170520
  7. LASIX [Concomitant]
     Active Substance: FUROSEMIDE
     Indication: CARDIAC FAILURE CONGESTIVE
     Dosage: 0.5 DF, QD
     Route: 048
     Dates: start: 20130119, end: 20170201
  8. DIGOSIN [Concomitant]
     Active Substance: DIGOXIN
     Dosage: 0.0625 MG, UNK
     Route: 048
     Dates: start: 20170807
  9. CHOLINE ALFOSCERATE [Concomitant]
     Active Substance: CHOLINE ALFOSCERATE
     Indication: NEURODEGENERATIVE DISORDER
     Dosage: 1 DF, BID
     Route: 048
     Dates: start: 20150331, end: 20170520
  10. CONCOR [Concomitant]
     Active Substance: BISOPROLOL FUMARATE
     Indication: ATRIAL FIBRILLATION
     Dosage: 1.25 MG, QD
     Route: 048
     Dates: start: 20130128, end: 20170520
  11. LASIX [Concomitant]
     Active Substance: FUROSEMIDE
     Dosage: 40 MG, QD
     Route: 048
     Dates: start: 20170728, end: 20170805
  12. THIAMIN [Concomitant]
     Active Substance: THIAMINE
     Indication: VITAMIN B1 DEFICIENCY
     Dosage: 1 DF, BID
     Route: 048
     Dates: start: 20111013, end: 20170520
  13. LASIX [Concomitant]
     Active Substance: FUROSEMIDE
     Indication: SYSTOLIC DYSFUNCTION
     Dosage: 1 DF, QD
     Route: 048
     Dates: start: 20170201, end: 20170520
  14. LASIX [Concomitant]
     Active Substance: FUROSEMIDE
     Dosage: 20 MG, QD
     Route: 048
     Dates: start: 20170806
  15. DIGOSIN [Concomitant]
     Active Substance: DIGOXIN
     Indication: CARDIAC FAILURE CONGESTIVE
     Dosage: 0.25 MG, QD
     Route: 048
     Dates: start: 20170728, end: 20170731

REACTIONS (7)
  - Dyspnoea [Recovered/Resolved]
  - Hypotension [Recovered/Resolved]
  - Dyspnoea [Recovered/Resolved]
  - Alcoholic liver disease [Recovering/Resolving]
  - Thrombocytopenia [Recovered/Resolved]
  - Delirium [Unknown]
  - Haematuria [Unknown]

NARRATIVE: CASE EVENT DATE: 20170125
